FAERS Safety Report 10195378 (Version 2)
Quarter: 2014Q2

REPORT INFORMATION
  Report Type: Report from Study
  Country: BR (occurrence: BR)
  Receive Date: 20140526
  Receipt Date: 20140526
  Transmission Date: 20141212
  Serious: Yes (Hospitalization, Other)
  Sender: FDA-Public Use
  Company Number: PHHY2014BR024128

PATIENT
  Age: 37 Year
  Sex: Female
  Weight: 105 kg

DRUGS (3)
  1. GILENYA [Suspect]
     Indication: MULTIPLE SCLEROSIS
     Dosage: 0.5 MG, QD
     Route: 048
     Dates: start: 20130806
  2. MICARDIS [Concomitant]
     Indication: HYPERTENSION
     Dosage: 1 DF, QD
     Route: 048
  3. ALLESTRA [Concomitant]
     Indication: CONTRACEPTION
     Dosage: 1 DF, QD
     Route: 048

REACTIONS (5)
  - Multiple sclerosis relapse [Recovering/Resolving]
  - Paraesthesia [Recovering/Resolving]
  - Urinary retention [Recovering/Resolving]
  - Inflammation [Recovered/Resolved]
  - Alopecia [Recovered/Resolved]
